FAERS Safety Report 13369575 (Version 1)
Quarter: 2017Q1

REPORT INFORMATION
  Report Type: Spontaneous
  Country: US (occurrence: US)
  Receive Date: 20170324
  Receipt Date: 20170324
  Transmission Date: 20170429
  Serious: No
  Sender: FDA-Public Use
  Company Number: US-ROCHE-1223866

PATIENT

DRUGS (2)
  1. XOLAIR [Suspect]
     Active Substance: OMALIZUMAB
     Indication: OFF LABEL USE
  2. XOLAIR [Suspect]
     Active Substance: OMALIZUMAB
     Indication: ICHTHYOSIS
     Route: 065

REACTIONS (3)
  - Blood immunoglobulin E increased [Unknown]
  - Vomiting [Unknown]
  - Nausea [Unknown]
